FAERS Safety Report 6131906-3 (Version None)
Quarter: 2009Q1

REPORT INFORMATION
  Report Type: 
  Country: None (occurrence: None)
  Receive Date: 20090325
  Receipt Date: 20090313
  Transmission Date: 20090719
  Serious: Yes (Hospitalization)
  Sender: FDA-Public Use
  Company Number: JP-PFIZER INC-2009185681

PATIENT

DRUGS (7)
  1. MYCOBUTIN [Suspect]
     Indication: MYCOBACTERIUM AVIUM COMPLEX INFECTION
     Dosage: 150 MG, 1X/DAY
     Route: 048
     Dates: start: 20090219, end: 20090309
  2. MYCOBUTIN [Suspect]
  3. BIOFERMIN R [Suspect]
     Dosage: 3 G, 1X/DAY
     Route: 048
     Dates: start: 20090219, end: 20090101
  4. MUCOSTA [Suspect]
     Dosage: 300 MG, 1X/DAY
     Route: 048
     Dates: start: 20090219, end: 20090101
  5. TOCLASE [Suspect]
     Dosage: 90 MG, 1X/DAY
     Route: 048
     Dates: start: 20090219, end: 20090101
  6. CLARITH [Suspect]
     Dosage: 400 MG, 1X/DAY
     Route: 048
     Dates: start: 20090219, end: 20090101
  7. ETHAMBUTOL HCL [Suspect]
     Dosage: 125 MG, 1X/DAY
     Dates: start: 20090219, end: 20090101

REACTIONS (3)
  - DECREASED APPETITE [None]
  - PYREXIA [None]
  - UPPER RESPIRATORY TRACT INFLAMMATION [None]
